FAERS Safety Report 7092673-2 (Version None)
Quarter: 2010Q4

REPORT INFORMATION
  Report Type: 
  Country: None (occurrence: None)
  Receive Date: 20101108
  Receipt Date: 20101108
  Transmission Date: 20110411
  Serious: Yes (Hospitalization)
  Sender: FDA-Public Use
  Company Number: None

PATIENT
  Age: 26 Day
  Sex: Male
  Weight: 113.3993 kg

DRUGS (1)
  1. EFFEXOR XR [Suspect]
     Indication: ANXIETY

REACTIONS (1)
  - PALPITATIONS [None]
